FAERS Safety Report 17597305 (Version 1)
Quarter: 2020Q1

REPORT INFORMATION
  Report Type: Spontaneous
  Country: NL (occurrence: NL)
  Receive Date: 20200330
  Receipt Date: 20200330
  Transmission Date: 20200409
  Serious: Yes (Other)
  Sender: FDA-Public Use
  Company Number: NL-TEVA-2020-NL-1212426

PATIENT
  Sex: Female
  Weight: 57 kg

DRUGS (7)
  1. LORAZEPAM. [Concomitant]
     Active Substance: LORAZEPAM
     Dosage: 1 MG, THERAPY START DATE: ASKED BUT UNKNOWN, THERAPY END DATE: ASKED BUT UNKNOWN
     Route: 061
  2. PARACETAMOL [Concomitant]
     Active Substance: ACETAMINOPHEN
     Dosage: 1000 MG, THERAPY START DATE: ASKED BUT UNKNOWN, THERAPY END DATE: ASKED BUT UNKNOWN
  3. IBUPROFEN. [Concomitant]
     Active Substance: IBUPROFEN
     Dosage: 400 MG, THERAPY START DATE: ASKED BUT UNKNOWN, THERAPY END DATE: ASKED BUT UNKNOWN
  4. TOPIRAMAAT [Concomitant]
     Active Substance: TOPIRAMATE
     Dosage: 50 MG, THERAPY START DATE: ASKED BUT UNKNOWN, THERAPY END DATE: ASKED BUT UNKNOWN
  5. QUETIAPINE. [Concomitant]
     Active Substance: QUETIAPINE
     Dosage: 25 MG
  6. CIPROFLOXACINE [Suspect]
     Active Substance: CIPROFLOXACIN
     Indication: PYELONEPHRITIS
     Dosage: THERAPY START DATE ; ASKED BUT UNKNOWN
     Route: 065
     Dates: start: 20200218
  7. SERTRALINE [Concomitant]
     Active Substance: SERTRALINE HYDROCHLORIDE
     Dosage: 50 MG, THERAPY START DATE: ASKED BUT UNKNOWN, THERAPY END DATE: ASKED BUT UNKNOWN

REACTIONS (4)
  - Psychotic symptom [Not Recovered/Not Resolved]
  - Nightmare [Not Recovered/Not Resolved]
  - Poor quality sleep [Not Recovered/Not Resolved]
  - Confusional state [Not Recovered/Not Resolved]
